FAERS Safety Report 21779343 (Version 1)
Quarter: 2022Q4

REPORT INFORMATION
  Report Type: Spontaneous
  Country: DK (occurrence: DK)
  Receive Date: 20221226
  Receipt Date: 20221226
  Transmission Date: 20230112
  Serious: Yes (Death, Hospitalization)
  Sender: FDA-Public Use
  Company Number: None

PATIENT
  Age: 69 Year
  Sex: Female
  Weight: 50 kg

DRUGS (1)
  1. METHOTREXATE (METHOTREXATE SODIUM) [Suspect]
     Active Substance: METHOTREXATE SODIUM
     Indication: Rheumatoid arthritis
     Dosage: 10 MG, QW, (LATEST ADMINISTRATION GIVEN ON 09 DEC 2022)
     Route: 048
     Dates: start: 202107

REACTIONS (4)
  - Toxicity to various agents [Fatal]
  - Pancytopenia [Fatal]
  - Febrile neutropenia [Fatal]
  - Delirium [Unknown]

NARRATIVE: CASE EVENT DATE: 20221214
